FAERS Safety Report 22758593 (Version 3)
Quarter: 2025Q1

REPORT INFORMATION
  Report Type: Spontaneous
  Country: JP (occurrence: JP)
  Receive Date: 20230728
  Receipt Date: 20250311
  Transmission Date: 20250408
  Serious: Yes (Hospitalization, Other)
  Sender: BRISTOL-MYERS SQUIBB COMPANY
  Company Number: JP-BRISTOL-MYERS SQUIBB COMPANY-2023-104160

PATIENT
  Age: 81 Year
  Sex: Male

DRUGS (2)
  1. YERVOY [Suspect]
     Active Substance: IPILIMUMAB
     Indication: Non-small cell lung cancer recurrent
     Route: 041
  2. OPDIVO [Suspect]
     Active Substance: NIVOLUMAB
     Indication: Non-small cell lung cancer recurrent
     Route: 041

REACTIONS (4)
  - Hypothyroidism [Recovering/Resolving]
  - Pneumonia aspiration [Recovering/Resolving]
  - Pyrexia [Recovered/Resolved]
  - Paralysis recurrent laryngeal nerve [Unknown]

NARRATIVE: CASE EVENT DATE: 20210501
